FAERS Safety Report 7444153-X (Version None)
Quarter: 2011Q2

REPORT INFORMATION
  Report Type: 
  Country: None (occurrence: None)
  Receive Date: 20110429
  Receipt Date: 20110427
  Transmission Date: 20111010
  Serious: Yes (Death, Hospitalization)
  Sender: FDA-Public Use
  Company Number: JP-SANOFI-AVENTIS-2011SA018536

PATIENT
  Age: 79 Year
  Sex: Female
  Weight: 48.9 kg

DRUGS (7)
  1. APIDRA [Suspect]
     Indication: DIABETES MELLITUS
     Dosage: SLIDING SCALE(0-10 UNITS IN MORNING, NOON, EVENING RESPECTIVELY)
     Route: 058
     Dates: start: 20100917, end: 20101117
  2. EPOGIN [Concomitant]
     Route: 042
     Dates: end: 20101113
  3. AMLODIPINE BESYLATE [Concomitant]
     Route: 048
     Dates: end: 20101117
  4. LASIX [Concomitant]
     Route: 048
     Dates: end: 20101117
  5. LORCAM [Concomitant]
     Route: 048
     Dates: end: 20101018
  6. MYONAL [Concomitant]
     Route: 048
     Dates: end: 20101018
  7. MUCOSTA [Concomitant]
     Route: 048
     Dates: end: 20101018

REACTIONS (2)
  - DUODENAL ULCER HAEMORRHAGE [None]
  - CARDIO-RESPIRATORY ARREST [None]
